FAERS Safety Report 4427749-9 (Version None)
Quarter: 2004Q3

REPORT INFORMATION
  Report Type: 
  Country: None (occurrence: None)
  Receive Date: 20040817
  Receipt Date: 20040805
  Transmission Date: 20050211
  Serious: Yes (Other)
  Sender: FDA-Public Use
  Company Number: PHFR2004GB02174

PATIENT
  Age: 52 Year
  Sex: Male

DRUGS (2)
  1. IMIGRAN [Suspect]
     Indication: MIGRAINE
     Route: 065
  2. PIZOTIFEN MALATE [Suspect]
     Indication: MIGRAINE
     Route: 065

REACTIONS (6)
  - BLOOD CHOLESTEROL INCREASED [None]
  - DRUG INTERACTION [None]
  - HYPERTENSION [None]
  - LOW DENSITY LIPOPROTEIN ABNORMAL [None]
  - RETINAL VEIN THROMBOSIS [None]
  - VISION BLURRED [None]
